FAERS Safety Report 8006736-8 (Version None)
Quarter: 2011Q4

REPORT INFORMATION
  Report Type: 
  Country: None (occurrence: None)
  Receive Date: 20111227
  Receipt Date: 20111215
  Transmission Date: 20120403
  Serious: Yes (Hospitalization)
  Sender: FDA-Public Use
  Company Number: US-BAYER-2011-053937

PATIENT
  Age: 24 Year
  Sex: Female
  Weight: 74.83 kg

DRUGS (6)
  1. YASMIN [Suspect]
     Indication: PREMENSTRUAL SYNDROME
  2. DROSPIRENONE AND ETHINYL ESTRADIOL [Suspect]
     Indication: MENSTRUATION IRREGULAR
  3. DROSPIRENONE AND ETHINYL ESTRADIOL [Suspect]
     Indication: PREMENSTRUAL SYNDROME
  4. DROSPIRENONE AND ETHINYL ESTRADIOL [Suspect]
     Indication: CONTRACEPTION
     Dosage: UNK
     Route: 048
     Dates: start: 20080701, end: 20100901
  5. YASMIN [Suspect]
     Indication: CONTRACEPTION
     Dosage: UNK
     Route: 048
     Dates: start: 20061001, end: 20080701
  6. YASMIN [Suspect]
     Indication: MENSTRUATION IRREGULAR

REACTIONS (9)
  - CHOLELITHIASIS [None]
  - PAIN [None]
  - VOMITING [None]
  - DIARRHOEA [None]
  - INJURY [None]
  - NAUSEA [None]
  - ABDOMINAL PAIN [None]
  - CHROMATURIA [None]
  - CHOLECYSTITIS CHRONIC [None]
